FAERS Safety Report 4557114-5 (Version None)
Quarter: 2005Q1

REPORT INFORMATION
  Report Type: 
  Country: None (occurrence: None)
  Receive Date: 20050118
  Receipt Date: 20050105
  Transmission Date: 20050727
  Serious: Yes (Hospitalization)
  Sender: FDA-Public Use
  Company Number: GBR-2004-0001301

PATIENT

DRUGS (4)
  1. OXYCODONE HCL [Suspect]
     Dosage: 20 MG, BID, TRANSPLACENTAL
     Route: 064
     Dates: start: 20040220
  2. PARACETAMOL [Concomitant]
  3. DIAZEPAM [Concomitant]
  4. TEMAZEPAM [Concomitant]

REACTIONS (3)
  - DRUG EXPOSURE DURING PREGNANCY [None]
  - DRUG WITHDRAWAL SYNDROME NEONATAL [None]
  - DYSKINESIA NEONATAL [None]
